FAERS Safety Report 10058324 (Version 2)
Quarter: 2014Q2

REPORT INFORMATION
  Report Type: Spontaneous
  Country: IT (occurrence: IT)
  Receive Date: 20140404
  Receipt Date: 20140414
  Transmission Date: 20141212
  Serious: Yes (Death, Hospitalization)
  Sender: FDA-Public Use
  Company Number: IT-009507513-1403ITA011331

PATIENT
  Age: 67 Year
  Sex: Female

DRUGS (2)
  1. TEMOZOLOMIDE [Suspect]
     Indication: GLIOBLASTOMA
     Dosage: 225 MG, QD
     Route: 048
  2. SULFAMETHOXAZOLE (+) TRIMETHOPRIM [Interacting]
     Indication: ANTIFUNGAL PROPHYLAXIS
     Dosage: 800 MG, QD

REACTIONS (3)
  - Acute interstitial pneumonitis [Fatal]
  - Drug interaction [Fatal]
  - Pulmonary toxicity [Fatal]
